FAERS Safety Report 16571442 (Version 1)
Quarter: 2019Q3

REPORT INFORMATION
  Report Type: Spontaneous
  Country: US (occurrence: US)
  Receive Date: 20190715
  Receipt Date: 20190715
  Transmission Date: 20191004
  Serious: No
  Sender: FDA-Public Use
  Company Number: US-GLAXOSMITHKLINE-US2019124507

PATIENT
  Age: 62 Year
  Sex: Female

DRUGS (1)
  1. NICORETTE [Suspect]
     Active Substance: NICOTINE
     Indication: SMOKING CESSATION THERAPY
     Dosage: 4 MG, UNK MORE THAN 9 AND UP
     Route: 048

REACTIONS (3)
  - Nicotine dependence [Unknown]
  - Hiccups [Unknown]
  - Extra dose administered [Unknown]

NARRATIVE: CASE EVENT DATE: 201905
